FAERS Safety Report 4648983-9 (Version None)
Quarter: 2005Q2

REPORT INFORMATION
  Report Type: 
  Country: None (occurrence: None)
  Receive Date: 20050427
  Receipt Date: 20050413
  Transmission Date: 20051028
  Serious: Yes (Hospitalization)
  Sender: FDA-Public Use
  Company Number: AZAUS200500105

PATIENT
  Age: 56 Year
  Sex: Male

DRUGS (1)
  1. VIDAZA [Suspect]
     Indication: MYELODYSPLASTIC SYNDROME
     Dosage: SUBCUTANEOUS
     Route: 058

REACTIONS (2)
  - COLITIS [None]
  - GASTROINTESTINAL HAEMORRHAGE [None]
